FAERS Safety Report 5293313-5 (Version None)
Quarter: 2007Q2

REPORT INFORMATION
  Report Type: 
  Country: None (occurrence: None)
  Receive Date: 20070411
  Receipt Date: 20070403
  Transmission Date: 20071010
  Serious: Yes (Death)
  Sender: FDA-Public Use
  Company Number: GB-AVENTIS-200712150GDDC

PATIENT
  Age: 70 Year
  Sex: Female
  Weight: 64.4 kg

DRUGS (3)
  1. TAXOTERE [Suspect]
     Route: 042
     Dates: start: 20061122, end: 20070202
  2. ADRIAMYCIN                         /00330901/ [Suspect]
     Indication: BREAST CANCER
     Route: 042
     Dates: start: 20061122, end: 20070202
  3. CYCLOPHOSPHAMIDE [Suspect]
     Indication: BREAST CANCER
     Route: 042
     Dates: start: 20061122, end: 20070202

REACTIONS (4)
  - ABDOMINAL PAIN [None]
  - DIARRHOEA [None]
  - NEUTROPENIC COLITIS [None]
  - NEUTROPENIC SEPSIS [None]
